FAERS Safety Report 5019820-8 (Version None)
Quarter: 2006Q2

REPORT INFORMATION
  Report Type: 
  Country: None (occurrence: None)
  Receive Date: 20060605
  Receipt Date: 20060605
  Transmission Date: 20061013
  Serious: Yes (Other)
  Sender: FDA-Public Use
  Company Number: None

PATIENT
  Sex: Male
  Weight: 79.8331 kg

DRUGS (2)
  1. NEURONTIN [Suspect]
     Indication: BRAIN DAMAGE
     Dosage: PO TID
     Route: 048
  2. NEURONTIN [Suspect]
     Indication: NEURALGIA
     Dosage: PO TID
     Route: 048

REACTIONS (4)
  - HYPOAESTHESIA [None]
  - INADEQUATE ANALGESIA [None]
  - PAIN [None]
  - THERAPEUTIC RESPONSE UNEXPECTED WITH DRUG SUBSTITUTION [None]
